FAERS Safety Report 8068531-3 (Version None)
Quarter: 2012Q1

REPORT INFORMATION
  Report Type: 
  Country: None (occurrence: None)
  Receive Date: 20120124
  Receipt Date: 20111101
  Transmission Date: 20120608
  Serious: No
  Sender: FDA-Public Use
  Company Number: US-AMGEN-USASP2011056828

PATIENT
  Age: 82 Year
  Sex: Female

DRUGS (3)
  1. THYROID HORMONES [Concomitant]
     Dosage: UNK MG, UNK
  2. PROLIA [Suspect]
     Indication: OSTEOPOROSIS POSTMENOPAUSAL
     Dosage: 60 MG, Q6MO
     Dates: start: 20110601
  3. PAXIL [Concomitant]
     Dosage: UNK MG, UNK

REACTIONS (3)
  - MYALGIA [None]
  - BONE DISORDER [None]
  - TOOTH DISORDER [None]
